FAERS Safety Report 23769454 (Version 2)
Quarter: 2024Q3

REPORT INFORMATION
  Report Type: Spontaneous
  Country: CA (occurrence: CA)
  Receive Date: 20240422
  Receipt Date: 20240927
  Transmission Date: 20241016
  Serious: Yes (Other)
  Sender: SANDOZ
  Company Number: CA-SANDOZ-SDZ2024CA041327

PATIENT
  Age: 53 Year
  Sex: Female
  Weight: 100 kg

DRUGS (5)
  1. ADALIMUMAB [Suspect]
     Active Substance: ADALIMUMAB
     Dosage: 40 MG, QW
     Route: 065
  2. ADALIMUMAB [Suspect]
     Active Substance: ADALIMUMAB
     Indication: Ankylosing spondylitis
     Dosage: 40 MG, Q2W
     Route: 065
  3. ADALIMUMAB [Suspect]
     Active Substance: ADALIMUMAB
     Dosage: 40 MG, SOLUTION
     Route: 058
  4. MESALAMINE [Suspect]
     Active Substance: MESALAMINE
     Dosage: 1.2 G, QD
     Route: 065
  5. MESALAMINE [Suspect]
     Active Substance: MESALAMINE
     Indication: Product used for unknown indication
     Dosage: 2.4 G, QD
     Route: 065

REACTIONS (6)
  - Drug level decreased [Recovering/Resolving]
  - Inflammatory bowel disease [Recovering/Resolving]
  - Stress [Recovering/Resolving]
  - Transaminases increased [Recovering/Resolving]
  - Ankylosing spondylitis [Recovering/Resolving]
  - Therapeutic response shortened [Recovering/Resolving]
